FAERS Safety Report 18238154 (Version 1)
Quarter: 2020Q3

REPORT INFORMATION
  Report Type: Spontaneous
  Country: US (occurrence: US)
  Receive Date: 20200907
  Receipt Date: 20200907
  Transmission Date: 20201103
  Serious: No
  Sender: FDA-Public Use
  Company Number: US-PFIZER INC-2020274272

PATIENT
  Age: 4 Year
  Sex: Female

DRUGS (4)
  1. MOMETASONE [Concomitant]
     Active Substance: MOMETASONE
     Indication: PRURITUS
     Dosage: UNK (ALTERNATING BIWEEKLY WITH EUCRISA)
  2. EUCRISA [Suspect]
     Active Substance: CRISABOROLE
     Indication: PRURITUS
     Dosage: UNK, BIWEEKLY
  3. MOMETASONE [Concomitant]
     Active Substance: MOMETASONE
     Indication: DERMATITIS ATOPIC
     Dosage: UNK, 2X/DAY (APPLY TWICE DAILY ON TOUGH SPOTS ON ARMS, LEGS AND NECK)
  4. EUCRISA [Suspect]
     Active Substance: CRISABOROLE
     Indication: DERMATITIS ATOPIC
     Dosage: UNK, 2X/DAY (APPLY TO NECK, ARMS AND LEGS)

REACTIONS (4)
  - Eye disorder [Unknown]
  - Alopecia [Unknown]
  - Dry eye [Unknown]
  - Skin fissures [Unknown]
